FAERS Safety Report 9275636 (Version 1)
Quarter: 2013Q2

REPORT INFORMATION
  Report Type: Spontaneous
  Country: US (occurrence: None)
  Receive Date: 20130502
  Receipt Date: 20130502
  Transmission Date: 20140414
  Serious: Yes (Disabling)
  Sender: FDA-Public Use
  Company Number: None

PATIENT
  Age: 53 Year
  Sex: Female
  Weight: 54.43 kg

DRUGS (1)
  1. LEXAPRO [Suspect]
     Dosage: 5 MILLIGRAMS ONCE DAILY PO
     Route: 048
     Dates: start: 20101210, end: 20101221

REACTIONS (13)
  - Major depression [None]
  - Anxiety [None]
  - Panic attack [None]
  - Fear [None]
  - Decreased appetite [None]
  - Headache [None]
  - Dry mouth [None]
  - Insomnia [None]
  - Palpitations [None]
  - Muscle twitching [None]
  - Adrenocortical insufficiency acute [None]
  - Flat affect [None]
  - Mood altered [None]
